FAERS Safety Report 16619125 (Version 1)
Quarter: 2019Q3

REPORT INFORMATION
  Report Type: Spontaneous
  Country: ES (occurrence: ES)
  Receive Date: 20190723
  Receipt Date: 20190723
  Transmission Date: 20191004
  Serious: Yes (Other)
  Sender: FDA-Public Use
  Company Number: PHHY2019ES166006

PATIENT
  Age: 21 Year
  Sex: Male

DRUGS (2)
  1. FERRIC CARBOXYMALTOSE [Concomitant]
     Active Substance: FERRIC CARBOXYMALTOSE
     Indication: MELANOCYTIC NAEVUS
     Dosage: 1000 MG, UNK
     Route: 065
  2. OCTREOTIDE. [Suspect]
     Active Substance: OCTREOTIDE
     Indication: MELANOCYTIC NAEVUS
     Dosage: 20 G, QMO
     Route: 065
     Dates: start: 2012, end: 201408

REACTIONS (2)
  - Osteonecrosis [Unknown]
  - Product use in unapproved indication [Unknown]

NARRATIVE: CASE EVENT DATE: 2012
